FAERS Safety Report 16081679 (Version 1)
Quarter: 2019Q1

REPORT INFORMATION
  Report Type: Other
  Country: CA (occurrence: CA)
  Receive Date: 20190316
  Receipt Date: 20190316
  Transmission Date: 20190418
  Serious: Yes (Hospitalization)
  Sender: FDA-Public Use
  Company Number: CA-GLENMARK PHARMACEUTICALS-2019GMK040213

PATIENT

DRUGS (5)
  1. GABAPENTIN. [Suspect]
     Active Substance: GABAPENTIN
     Dosage: 400 MG, UNK
     Route: 065
  2. GABAPENTIN. [Suspect]
     Active Substance: GABAPENTIN
     Indication: NEURALGIA
     Dosage: 1800 MG, QD (1 EVERY 24 HOURS)
     Route: 065
  3. LORAZEPAM. [Concomitant]
     Active Substance: LORAZEPAM
     Indication: PRODUCT USED FOR UNKNOWN INDICATION
     Dosage: UNK
     Route: 065
  4. SERTRALINE [Concomitant]
     Active Substance: SERTRALINE HYDROCHLORIDE
     Indication: PRODUCT USED FOR UNKNOWN INDICATION
     Dosage: UNK
     Route: 065
  5. GABAPENTIN. [Suspect]
     Active Substance: GABAPENTIN
     Indication: FIBROMYALGIA
     Dosage: 600 MG, UNK
     Route: 065

REACTIONS (12)
  - Abdominal pain [Recovered/Resolved]
  - Decreased appetite [Recovered/Resolved]
  - Insomnia [Recovered/Resolved]
  - Nausea [Recovered/Resolved]
  - Headache [Recovered/Resolved]
  - Fall [Recovered/Resolved]
  - Hyperhidrosis [Recovered/Resolved]
  - Blood pressure increased [Recovered/Resolved]
  - Drug ineffective [Unknown]
  - Chills [Recovered/Resolved]
  - Withdrawal syndrome [Recovered/Resolved]
  - Off label use [Unknown]
